FAERS Safety Report 18205969 (Version 2)
Quarter: 2020Q3

REPORT INFORMATION
  Report Type: Spontaneous
  Country: CN (occurrence: CN)
  Receive Date: 20200827
  Receipt Date: 20200907
  Transmission Date: 20201103
  Serious: Yes (Other)
  Sender: FDA-Public Use
  Company Number: CN-009507513-2008CHN012634

PATIENT
  Age: 50 Year
  Sex: Female

DRUGS (8)
  1. PACLITAXEL ALBUMIN [Suspect]
     Active Substance: PACLITAXEL
     Dosage: 200 MG, DAY 1 OF CYCLE 4
     Route: 042
     Dates: start: 20200710, end: 20200710
  2. KEYTRUDA [Suspect]
     Active Substance: PEMBROLIZUMAB
     Indication: INVASIVE DUCTAL BREAST CARCINOMA
     Dosage: CYCLE 1?3; 200 MG, D1, Q3W
     Route: 042
     Dates: start: 20200429, end: 20200429
  3. PACLITAXEL ALBUMIN [Suspect]
     Active Substance: PACLITAXEL
     Dosage: 200 MG, CYCLE 1?3, D1, D8
     Route: 042
     Dates: start: 20200610, end: 20200610
  4. KEYTRUDA [Suspect]
     Active Substance: PEMBROLIZUMAB
     Dosage: 200 MG, ONCE DAILY (QD); DAY 1 OF CYCLE 4
     Route: 041
     Dates: start: 20200710, end: 20200710
  5. PACLITAXEL ALBUMIN [Suspect]
     Active Substance: PACLITAXEL
     Dosage: 200 MG, CYCLE 1?3, D1, D8
     Route: 042
     Dates: start: 20200520, end: 20200520
  6. KEYTRUDA [Suspect]
     Active Substance: PEMBROLIZUMAB
     Dosage: CYCLE 1?3; 200 MG, D1, Q3W
     Route: 042
     Dates: start: 20200520, end: 20200520
  7. KEYTRUDA [Suspect]
     Active Substance: PEMBROLIZUMAB
     Dosage: CYCLE 1?3; 200 MG, D1, Q3W
     Route: 042
     Dates: start: 20200610, end: 20200610
  8. PACLITAXEL ALBUMIN [Suspect]
     Active Substance: PACLITAXEL
     Indication: INVASIVE DUCTAL BREAST CARCINOMA
     Dosage: 200 MG, CYCLE 1?3, D1, D8
     Route: 042
     Dates: start: 20200429, end: 20200429

REACTIONS (3)
  - Myelosuppression [Recovering/Resolving]
  - Inappropriate schedule of product administration [Unknown]
  - Product use in unapproved indication [Unknown]

NARRATIVE: CASE EVENT DATE: 20200429
